FAERS Safety Report 13977826 (Version 1)
Quarter: 2017Q3

REPORT INFORMATION
  Report Type: Report from Study
  Country: JP (occurrence: JP)
  Receive Date: 20170915
  Receipt Date: 20170915
  Transmission Date: 20171128
  Serious: Yes (Death, Life-Threatening, Hospitalization, Other)
  Sender: FDA-Public Use
  Company Number: JP-BRISTOL-MYERS SQUIBB COMPANY-11598133

PATIENT
  Age: 38 Year
  Sex: Male

DRUGS (23)
  1. VIDEX [Suspect]
     Active Substance: DIDANOSINE
     Indication: ACQUIRED IMMUNODEFICIENCY SYNDROME
     Dosage: ONGOING 01/SEPT/1993 - 01/AUG/1994; 01/MAR/1996 - 01/OCT/1996; AND 10/JAN/2000 - 08/DEC/2000
     Route: 048
     Dates: start: 19930901, end: 20001208
  2. COMBIVIR [Suspect]
     Active Substance: LAMIVUDINE\ZIDOVUDINE
     Indication: HIV INFECTION
     Dosage: 2 DF, QD
     Route: 048
     Dates: start: 20010213, end: 20010510
  3. EPIVIR [Suspect]
     Active Substance: LAMIVUDINE
     Indication: PRODUCT USED FOR UNKNOWN INDICATION
     Dosage: THERAPY INTERRUPTED ON 09-JAN-2000, DISCONTINUED ON 06-JUL-2001.
     Route: 048
     Dates: start: 199610, end: 20010706
  4. AMPRENAVIR [Suspect]
     Active Substance: AMPRENAVIR
     Indication: HIV INFECTION
     Dosage: 1500 MG, QD
     Route: 048
     Dates: start: 20010723, end: 20050803
  5. SOMATROPIN. [Suspect]
     Active Substance: SOMATROPIN
     Indication: WEIGHT DECREASED
     Dosage: 5 MG, INTERMITTENT
     Route: 058
     Dates: start: 20010319, end: 20011112
  6. VIRACEPT [Concomitant]
     Active Substance: NELFINAVIR MESYLATE
     Indication: PRODUCT USED FOR UNKNOWN INDICATION
     Dosage: 2.5 G, QD
     Route: 048
     Dates: start: 19980401, end: 20000109
  7. STAVUDINE. [Suspect]
     Active Substance: STAVUDINE
     Indication: ACQUIRED IMMUNODEFICIENCY SYNDROME
     Dosage: ONGOING 01-AUG-1995 TO 01-MAR-1996 AND 01-APR-1998 TO 08-DEC-2000.
     Route: 048
     Dates: start: 19950801, end: 20001208
  8. CRIXIVAN [Concomitant]
     Active Substance: INDINAVIR SULFATE
     Indication: PRODUCT USED FOR UNKNOWN INDICATION
     Dosage: 2.4 G, QD
     Route: 048
     Dates: start: 19970501, end: 19980401
  9. RECOMBINATE [Concomitant]
     Active Substance: ANTIHEMOPHILIC FACTOR, HUMAN RECOMBINANT
     Indication: FACTOR VIII DEFICIENCY
     Dosage: 1000 DF, QD
     Route: 042
     Dates: start: 19980828
  10. ZIAGEN [Suspect]
     Active Substance: ABACAVIR SULFATE
     Indication: ACQUIRED IMMUNODEFICIENCY SYNDROME
     Dosage: THERAPY INTERRUPTED FROM 08-DEC-2000 TO 05-JUN-2001
     Route: 048
     Dates: start: 20000124, end: 20010706
  11. KALETRA [Suspect]
     Active Substance: LOPINAVIR\RITONAVIR
     Indication: HIV INFECTION
     Dosage: 8 CAPS 9MAR-6JUL01, RESTARTED 23JUL01 STOPPED 4OCT6 REDUCED TO 6 TABS FROM 05OCT6-15SEP8 (1900 DAYS)
     Route: 065
     Dates: start: 20010309, end: 20080925
  12. OIF [Concomitant]
     Indication: HEPATITIS C
     Dosage: 10 (MILLION-BILLION UNIT)
     Route: 030
     Dates: start: 20000710, end: 20001208
  13. FOSAMPRENAVIR CALCIUM [Suspect]
     Active Substance: FOSAMPRENAVIR CALCIUM
     Indication: HIV INFECTION
     Dosage: 1400 MG, BID
     Route: 048
     Dates: start: 20050804
  14. RALTEGRAVIR. [Suspect]
     Active Substance: RALTEGRAVIR
     Indication: ACQUIRED IMMUNODEFICIENCY SYNDROME
     Dosage: UNK
     Route: 065
     Dates: start: 20080926
  15. LOPERAMIDE HCL [Concomitant]
     Active Substance: LOPERAMIDE HYDROCHLORIDE
     Indication: PRODUCT USED FOR UNKNOWN INDICATION
     Dosage: UNK
     Route: 065
     Dates: start: 20020401, end: 20090401
  16. TRUVADA [Suspect]
     Active Substance: EMTRICITABINE\TENOFOVIR DISOPROXIL FUMARATE
     Indication: HIV INFECTION
     Dosage: 1 DF = 1 TABLET
     Route: 048
     Dates: start: 20080926, end: 20091001
  17. SAQUINAVIR MESYLATE [Suspect]
     Active Substance: SAQUINAVIR MESYLATE
     Indication: HIV INFECTION
     Dosage: 800 MG, UNK
     Route: 065
     Dates: start: 20010105, end: 20010308
  18. RETROVIR [Concomitant]
     Active Substance: ZIDOVUDINE
     Indication: PRODUCT USED FOR UNKNOWN INDICATION
     Dosage: INTERRUPTED 9/1/93 TO 8/1/94, INTERRUPTED 8/1/95 TO 3/1/96, INTERRUPTED 4/1/98 TO 5/11/01
     Route: 048
     Dates: start: 19921101, end: 20010604
  19. OCTOCOG ALPHA [Concomitant]
     Indication: PRODUCT USED FOR UNKNOWN INDICATION
     Dosage: UNK
     Route: 065
     Dates: end: 20080413
  20. EFAVIRENZ [Suspect]
     Active Substance: EFAVIRENZ
     Indication: ACQUIRED IMMUNODEFICIENCY SYNDROME
     Dosage: THERAPY INTERP 12/8/00,RESTARTED 3/9/01,INTERRUPT7/01,+RESTARTED 7/23/01-25SEP8(2622 DAYS)
     Route: 048
     Dates: start: 20000110, end: 20080925
  21. NORVIR [Suspect]
     Active Substance: RITONAVIR
     Indication: HIV INFECTION
     Dosage: 05JAN01 TO 04FEB01, 05FEB01 TO 08MAR01 AND 26SEP08 TO ONGOING.
     Route: 065
     Dates: start: 20010105
  22. LOPEMIN [Concomitant]
     Active Substance: LOPERAMIDE HYDROCHLORIDE
     Indication: DIARRHOEA
     Dosage: 3MG STOPPED ON 31-MAR-2002 AND REDUCED TO 2 MG FROM 01-APR-2002
     Route: 048
     Dates: start: 19921101
  23. PREZISTA [Suspect]
     Active Substance: DARUNAVIR ETHANOLATE
     Indication: HIV INFECTION
     Dosage: TABS
     Route: 048
     Dates: start: 20080926

REACTIONS (9)
  - Death [Fatal]
  - Neuropathy peripheral [Recovered/Resolved]
  - Amylase increased [Unknown]
  - Lactic acidosis [Recovering/Resolving]
  - Hyperlactacidaemia [Recovering/Resolving]
  - Diarrhoea [Recovering/Resolving]
  - Acute kidney injury [Recovering/Resolving]
  - Pancreatitis acute [Recovering/Resolving]
  - Hyperlipidaemia [Recovering/Resolving]

NARRATIVE: CASE EVENT DATE: 199804
